FAERS Safety Report 7370760-9 (Version None)
Quarter: 2011Q1

REPORT INFORMATION
  Report Type: 
  Country: None (occurrence: None)
  Receive Date: 20110323
  Receipt Date: 20110310
  Transmission Date: 20110831
  Serious: Yes (Hospitalization, Other)
  Sender: FDA-Public Use
  Company Number: GB-MYLANLABS-2011S1005224

PATIENT
  Age: 42 Year
  Sex: Female

DRUGS (3)
  1. BETAMETHASONE [Suspect]
     Indication: PRENATAL CARE
     Route: 042
  2. METFORMIN HCL [Suspect]
     Indication: GESTATIONAL DIABETES
  3. INSULIN [Suspect]
     Indication: GESTATIONAL DIABETES

REACTIONS (2)
  - DRUG EXPOSURE DURING PREGNANCY [None]
  - DIABETIC KETOACIDOSIS [None]
